FAERS Safety Report 6259298-X (Version None)
Quarter: 2009Q3

REPORT INFORMATION
  Report Type: 
  Country: None (occurrence: None)
  Receive Date: 20090707
  Receipt Date: 20090630
  Transmission Date: 20100115
  Serious: Yes (Hospitalization)
  Sender: FDA-Public Use
  Company Number: PHHO2009US04377

PATIENT
  Sex: Male
  Weight: 70.3 kg

DRUGS (4)
  1. BLINDED NO TREATMENT RECEIVED NOMED [Suspect]
     Indication: PANCREATIC NEUROENDOCRINE TUMOUR
     Dosage: DOUBLE BLIND
     Dates: start: 20080731, end: 20090114
  2. BLINDED PLACEBO COMP-PLA+ [Suspect]
     Indication: PANCREATIC NEUROENDOCRINE TUMOUR
     Dosage: DOUBLE BLIND
     Dates: start: 20080731, end: 20090114
  3. BLINDED RAD 666 RAD+TAB+CMAS [Suspect]
     Indication: PANCREATIC NEUROENDOCRINE TUMOUR
     Dosage: DOUBLE BLIND
     Dates: start: 20080731, end: 20090114
  4. RAD 666 / RAD 001A [Suspect]
     Indication: PANCREATIC NEUROENDOCRINE TUMOUR
     Dosage: 10 MG, QD
     Route: 048
     Dates: start: 20090115

REACTIONS (5)
  - CHILLS [None]
  - ERYTHEMA [None]
  - OEDEMA [None]
  - PAIN [None]
  - SWELLING [None]
